FAERS Safety Report 4403973-6 (Version None)
Quarter: 2004Q3

REPORT INFORMATION
  Report Type: 
  Country: None (occurrence: None)
  Receive Date: 20040719
  Receipt Date: 20040712
  Transmission Date: 20050211
  Serious: Yes (Other)
  Sender: FDA-Public Use
  Company Number: 2004-06-0162

PATIENT
  Age: 60 Year
  Sex: Male
  Weight: 59 kg

DRUGS (12)
  1. INTRON A [Suspect]
     Indication: HEPATITIS C
     Dosage: SEE IMAGE
     Route: 030
     Dates: start: 20040409, end: 20040423
  2. INTRON A [Suspect]
     Indication: HEPATITIS C
     Dosage: SEE IMAGE
     Route: 030
     Dates: start: 20040426, end: 20040519
  3. INTRON A [Suspect]
     Indication: HEPATITIS C
     Dosage: SEE IMAGE
     Route: 030
     Dates: start: 20040621, end: 20040702
  4. INTRON A [Suspect]
     Indication: HEPATITIS C
     Dosage: SEE IMAGE
     Route: 030
     Dates: start: 20040409
  5. INTRON A [Suspect]
     Indication: HEPATITIS C
     Dosage: SEE IMAGE
     Route: 030
     Dates: start: 20040705
  6. REBETOL [Suspect]
     Indication: HEPATITIS C
     Dosage: 600 MG ORAL
     Route: 048
     Dates: start: 20040409, end: 20040521
  7. REBETOL [Suspect]
     Indication: HEPATITIS C
     Dosage: 600 MG ORAL
     Route: 048
     Dates: start: 20040409
  8. REBETOL [Suspect]
     Indication: HEPATITIS C
     Dosage: 600 MG ORAL
     Route: 048
     Dates: start: 20040621
  9. NORVASC [Concomitant]
  10. BLOPRESS (CANDESARTAN CILEXETIL) TABLETS [Concomitant]
  11. URSO TABLETS [Concomitant]
  12. HERBAL MEDICATION NOS [Concomitant]

REACTIONS (2)
  - CONDITION AGGRAVATED [None]
  - FUNDOSCOPY ABNORMAL [None]
